FAERS Safety Report 9131565 (Version 1)
Quarter: 2013Q1

REPORT INFORMATION
  Report Type: Report from Study
  Country: US (occurrence: US)
  Receive Date: 20130301
  Receipt Date: 20130301
  Transmission Date: 20140127
  Serious: No
  Sender: FDA-Public Use
  Company Number: US-MYLANLABS-2012S1008328

PATIENT
  Sex: Female

DRUGS (4)
  1. AMNESTEEM CAPSULES [Suspect]
     Indication: ACNE
  2. AMNESTEEM CAPSULES [Suspect]
     Indication: ACNE
  3. AMNESTEEM CAPSULES [Suspect]
     Indication: ACNE
  4. AMNESTEEM CAPSULES [Suspect]
     Indication: ACNE

REACTIONS (2)
  - Liver function test abnormal [Not Recovered/Not Resolved]
  - Pain [Not Recovered/Not Resolved]
